FAERS Safety Report 4631452-X (Version None)
Quarter: 2005Q2

REPORT INFORMATION
  Report Type: 
  Country: None (occurrence: None)
  Receive Date: 20050407
  Receipt Date: 20050325
  Transmission Date: 20051028
  Serious: Yes (Hospitalization)
  Sender: FDA-Public Use
  Company Number: 2005050566

PATIENT
  Age: 38 Year
  Sex: Female

DRUGS (1)
  1. GABAPENTIN [Suspect]
     Indication: ILL-DEFINED DISORDER

REACTIONS (4)
  - DRUG HYPERSENSITIVITY [None]
  - DYSTONIA [None]
  - JOINT STIFFNESS [None]
  - SWOLLEN TONGUE [None]
